FAERS Safety Report 17561658 (Version 1)
Quarter: 2020Q1

REPORT INFORMATION
  Report Type: Report from Study
  Country: ES (occurrence: ES)
  Receive Date: 20200319
  Receipt Date: 20200319
  Transmission Date: 20200409
  Serious: Yes (Hospitalization)
  Sender: FDA-Public Use
  Company Number: ES-PFIZER INC-2020112079

PATIENT
  Age: 12 Year
  Sex: Female
  Weight: 37 kg

DRUGS (3)
  1. METRONIDAZOL [METRONIDAZOLE] [Suspect]
     Active Substance: METRONIDAZOLE
     Indication: BRAIN EMPYEMA
     Route: 042
     Dates: start: 20191126, end: 20191220
  2. VANCOMYCIN HCL [Suspect]
     Active Substance: VANCOMYCIN HYDROCHLORIDE
     Indication: BRAIN EMPYEMA
     Dosage: 650 MG, 4X/DAY
     Route: 042
     Dates: start: 20191122, end: 20191212
  3. CEFOTAXIME [Suspect]
     Active Substance: CEFOTAXIME SODIUM
     Indication: BRAIN EMPYEMA
     Route: 042
     Dates: start: 20191122, end: 20191214

REACTIONS (2)
  - Drug reaction with eosinophilia and systemic symptoms [Recovered/Resolved]
  - Hepatitis [Recovered/Resolved]

NARRATIVE: CASE EVENT DATE: 20191211
